FAERS Safety Report 10078472 (Version 1)
Quarter: 2014Q2

REPORT INFORMATION
  Report Type: Spontaneous
  Country: PT (occurrence: PT)
  Receive Date: 20140415
  Receipt Date: 20140415
  Transmission Date: 20141212
  Serious: Yes (Other)
  Sender: FDA-Public Use
  Company Number: PT-ELI_LILLY_AND_COMPANY-PT201404001199

PATIENT
  Age: 64 Year
  Sex: Female

DRUGS (4)
  1. ZYPREXA VELOTAB [Suspect]
     Indication: PRODUCT USED FOR UNKNOWN INDICATION
     Dosage: 5 MG, QD
     Route: 065
     Dates: start: 201306
  2. ZYPREXA VELOTAB [Suspect]
     Dosage: UNK
     Route: 065
  3. ZYPREXA [Suspect]
     Indication: PRODUCT USED FOR UNKNOWN INDICATION
     Dosage: 2.5 MG, QD
     Route: 065
  4. SIMVASTATIN [Concomitant]
     Route: 065

REACTIONS (4)
  - Glaucoma [Unknown]
  - Wrong technique in drug usage process [Unknown]
  - Constipation [Recovering/Resolving]
  - Dizziness [Recovering/Resolving]
